FAERS Safety Report 6510323-8 (Version None)
Quarter: 2009Q4

REPORT INFORMATION
  Report Type: 
  Country: None (occurrence: None)
  Receive Date: 20091222
  Receipt Date: 20090922
  Transmission Date: 20100525
  Serious: No
  Sender: FDA-Public Use
  Company Number: US-ASTRAZENECA-2009SE15162

PATIENT
  Age: 18528 Day
  Sex: Male
  Weight: 117.9 kg

DRUGS (2)
  1. CRESTOR [Suspect]
     Route: 048
  2. CRESTOR [Suspect]
     Route: 048
     Dates: start: 20081111, end: 20090320

REACTIONS (3)
  - BACK PAIN [None]
  - MUSCLE SPASMS [None]
  - MUSCULOSKELETAL STIFFNESS [None]
